FAERS Safety Report 7223488-X (Version None)
Quarter: 2011Q1

REPORT INFORMATION
  Report Type: 
  Country: None (occurrence: None)
  Receive Date: 20110112
  Receipt Date: 20100726
  Transmission Date: 20110831
  Serious: No
  Sender: FDA-Public Use
  Company Number: US-ALLERGAN-1009690US

PATIENT
  Age: 74 Year
  Sex: Female

DRUGS (4)
  1. COMBIGAN[R] [Concomitant]
     Indication: GLAUCOMA
     Dosage: 1 GTT, BID BOTH EYES
     Route: 047
  2. XALATAN [Concomitant]
     Dosage: 1 GTT, BID
     Route: 047
  3. PREDNISONE [Concomitant]
     Indication: INFLAMMATION
     Dosage: 1 GTT, BID OS
     Route: 047
  4. RESTASIS [Suspect]
     Indication: DRY EYE
     Dosage: 1 GTT, BID
     Route: 047
     Dates: start: 20100301

REACTIONS (6)
  - EYE IRRITATION [None]
  - OCULAR HYPERAEMIA [None]
  - DRY EYE [None]
  - FOREIGN BODY SENSATION IN EYES [None]
  - EYE PAIN [None]
  - LACRIMATION INCREASED [None]
